FAERS Safety Report 6007325-7 (Version None)
Quarter: 2008Q4

REPORT INFORMATION
  Report Type: 
  Country: None (occurrence: None)
  Receive Date: 20081217
  Receipt Date: 20080310
  Transmission Date: 20090506
  Serious: No
  Sender: FDA-Public Use
  Company Number: US-ASTRAZENECA-2008UW04799

PATIENT
  Age: 69 Year
  Sex: Male
  Weight: 104.3 kg

DRUGS (13)
  1. CRESTOR [Suspect]
     Indication: BLOOD CHOLESTEROL
     Route: 048
     Dates: start: 20080201
  2. ATACAND [Concomitant]
  3. NORVASC [Concomitant]
  4. TOPROL-XL [Concomitant]
  5. CLOPIDOGREL [Concomitant]
  6. GLIPIZIDE [Concomitant]
  7. MELOXICAM [Concomitant]
  8. JANUMET [Concomitant]
  9. ASPIRIN [Concomitant]
  10. CENTRUM SILVER [Concomitant]
  11. LOVAZA [Concomitant]
  12. ASCORBIC ACID [Concomitant]
  13. CHONDROITIN [Concomitant]

REACTIONS (5)
  - FLUID RETENTION [None]
  - JOINT SWELLING [None]
  - PRURITUS [None]
  - RASH [None]
  - SWELLING FACE [None]
